FAERS Safety Report 9128949 (Version 1)
Quarter: 2013Q1

REPORT INFORMATION
  Report Type: Spontaneous
  Country: US (occurrence: US)
  Receive Date: 20130228
  Receipt Date: 20130228
  Transmission Date: 20140127
  Serious: No
  Sender: FDA-Public Use
  Company Number: US-009507513-1302USA011500

PATIENT
  Sex: Male

DRUGS (3)
  1. RIBAVIRIN [Suspect]
     Indication: HEPATITIS C
     Dosage: 6 DF, QD
     Route: 048
     Dates: start: 20130203
  2. RIBAVIRIN [Suspect]
     Dosage: 4 DF, QD
     Route: 048
  3. PEGASYS [Suspect]
     Indication: HEPATITIS C
     Dosage: UNK
     Dates: start: 20130203

REACTIONS (6)
  - Anaemia [Unknown]
  - Red blood cell count decreased [Unknown]
  - Atrial flutter [Unknown]
  - Heart rate increased [Unknown]
  - Headache [Unknown]
  - Rash [Unknown]
